FAERS Safety Report 11616713 (Version 1)
Quarter: 2015Q4

REPORT INFORMATION
  Report Type: Report from Study
  Country: DE (occurrence: DE)
  Receive Date: 20151009
  Receipt Date: 20151009
  Transmission Date: 20160304
  Serious: Yes (Other)
  Sender: FDA-Public Use
  Company Number: DE-BAYER-2015-439587

PATIENT
  Age: 65 Year
  Sex: Male
  Weight: 100 kg

DRUGS (3)
  1. ASPIRIN 500 MG COATED TABLETS [Suspect]
     Active Substance: ASPIRIN
     Indication: HEADACHE
     Dosage: UNK
  2. ASPIRIN 500 MG COATED TABLETS [Suspect]
     Active Substance: ASPIRIN
     Indication: HEADACHE
     Dosage: 3 TABLETS WITHIN 3 HOURS
     Route: 048
  3. TALCID [Concomitant]
     Active Substance: HYDROTALCITE

REACTIONS (3)
  - Vomiting [None]
  - Overdose [None]
  - Abdominal discomfort [None]
